FAERS Safety Report 10395582 (Version 1)
Quarter: 2014Q3

REPORT INFORMATION
  Report Type: Spontaneous
  Country: US (occurrence: None)
  Receive Date: 20140815
  Receipt Date: 20140815
  Transmission Date: 20150326
  Serious: Yes (Other)
  Sender: FDA-Public Use
  Company Number: None

PATIENT
  Sex: Male
  Weight: 117.03 kg

DRUGS (2)
  1. DULOXETINE [Suspect]
     Active Substance: DULOXETINE
     Dates: start: 201308
  2. DULOXETINE [Suspect]
     Active Substance: DULOXETINE
     Dates: start: 201407

REACTIONS (2)
  - Dizziness [None]
  - Drug ineffective [None]
